FAERS Safety Report 22612465 (Version 2)
Quarter: 2023Q4

REPORT INFORMATION
  Report Type: Spontaneous
  Country: GB (occurrence: GB)
  Receive Date: 20230617
  Receipt Date: 20231024
  Transmission Date: 20240110
  Serious: Yes (Other)
  Sender: FDA-Public Use
  Company Number: GB-MLMSERVICE-20230601-4321668-1

PATIENT
  Age: 66 Year
  Sex: Female

DRUGS (1)
  1. SERTRALINE [Suspect]
     Active Substance: SERTRALINE HYDROCHLORIDE
     Indication: Erythromelalgia
     Dosage: UNK
     Route: 065
     Dates: end: 2022

REACTIONS (3)
  - Erythromelalgia [Unknown]
  - Condition aggravated [Unknown]
  - Drug intolerance [Recovered/Resolved]
